FAERS Safety Report 12482721 (Version 1)
Quarter: 2016Q2

REPORT INFORMATION
  Report Type: Other
  Country: DE (occurrence: DE)
  Receive Date: 20160620
  Receipt Date: 20160620
  Transmission Date: 20160815
  Serious: Yes (Death, Life-Threatening)
  Sender: FDA-Public Use
  Company Number: DE-MYLANLABS-2016M1024960

PATIENT

DRUGS (8)
  1. OLANZAPINE. [Interacting]
     Active Substance: OLANZAPINE
     Dosage: 5-10 MG BEI BEDARF
     Route: 048
  2. ABILIFY [Interacting]
     Active Substance: ARIPIPRAZOLE
     Dosage: 7.5 MG, QD
     Route: 048
  3. AKINETON [Concomitant]
     Active Substance: BIPERIDEN HYDROCHLORIDE
     Dosage: 2 MG, QD
     Route: 048
  4. DIAZEPAM. [Interacting]
     Active Substance: DIAZEPAM
     Dosage: 8 MG, QD
     Route: 048
  5. GASTROZEPIN [Concomitant]
     Active Substance: PIRENZEPINE HYDROCHLORIDE
     Dosage: 25 MG, QD
     Route: 048
  6. TAVOR (LORAZEPAM) [Interacting]
     Active Substance: LORAZEPAM
     Dosage: 1-3 MG BEI BEDARF
     Route: 048
  7. VALPROIC ACID. [Suspect]
     Active Substance: VALPROIC ACID
     Dosage: 1600 MG, QD
     Route: 048
  8. BENPERIDOL [Interacting]
     Active Substance: BENPERIDOL
     Dosage: 8 MG, QD
     Route: 048

REACTIONS (1)
  - Sudden death [Fatal]

NARRATIVE: CASE EVENT DATE: 20150616
